FAERS Safety Report 6891284-9 (Version None)
Quarter: 2010Q3

REPORT INFORMATION
  Report Type: 
  Country: None (occurrence: None)
  Receive Date: 20100731
  Receipt Date: 20090720
  Transmission Date: 20110219
  Serious: No
  Sender: FDA-Public Use
  Company Number: US-PFIZER INC-2009215228

PATIENT
  Sex: Female
  Weight: 53.5 kg

DRUGS (2)
  1. LIPITOR [Suspect]
     Indication: BLOOD CHOLESTEROL INCREASED
     Route: 048
     Dates: start: 20060101, end: 20060101
  2. SYNTHROID [Concomitant]
     Dosage: UNK

REACTIONS (2)
  - MUSCLE FATIGUE [None]
  - WEIGHT INCREASED [None]
